FAERS Safety Report 15917094 (Version 2)
Quarter: 2019Q1

REPORT INFORMATION
  Report Type: Report from Study
  Country: CA (occurrence: CA)
  Receive Date: 20190205
  Receipt Date: 20190311
  Transmission Date: 20190417
  Serious: Yes (Other)
  Sender: FDA-Public Use
  Company Number: CA-NALPROPION PHARMACEUTICALS INC.-2019-006406

PATIENT

DRUGS (5)
  1. CONTRAVE [Suspect]
     Active Substance: BUPROPION HYDROCHLORIDE\NALTREXONE HYDROCHLORIDE
     Dosage: 2 DOSAGE FORMS (1 DOSAGE FORMS,2 IN 1 D)
     Route: 048
     Dates: start: 20190109, end: 20190115
  2. CONTRAVE [Suspect]
     Active Substance: BUPROPION HYDROCHLORIDE\NALTREXONE HYDROCHLORIDE
     Dosage: 2 TABLETS IN MORNING, 2 TABLETS IN EVENING (2 DOSAGE FORMS,2 IN 1 D)
     Route: 048
     Dates: start: 20190123
  3. CONTRAVE [Suspect]
     Active Substance: BUPROPION HYDROCHLORIDE\NALTREXONE HYDROCHLORIDE
     Indication: WEIGHT CONTROL
     Dosage: 1 DOSAGE FORMS (1 DOSAGE FORMS,1 IN 1 D)
     Route: 048
     Dates: start: 20190102, end: 20190108
  4. NAPROXEN. [Concomitant]
     Active Substance: NAPROXEN
     Indication: ARTHRALGIA
     Dosage: EVERY 3-4 DAYS AS NEEDED
     Route: 048
  5. CONTRAVE [Suspect]
     Active Substance: BUPROPION HYDROCHLORIDE\NALTREXONE HYDROCHLORIDE
     Dosage: 2 TABLETS IN MORNING, 1 TABLET IN EVENING (2 IN 1 D)
     Route: 048
     Dates: start: 20190116, end: 20190122

REACTIONS (12)
  - Headache [Recovering/Resolving]
  - Middle insomnia [Recovering/Resolving]
  - Dry mouth [Recovered/Resolved]
  - Dyspnoea at rest [Recovering/Resolving]
  - Fatigue [Recovering/Resolving]
  - Blood pressure increased [Recovering/Resolving]
  - Dizziness [Recovered/Resolved]
  - Palpitations [Recovering/Resolving]
  - Cardiac flutter [Recovering/Resolving]
  - Feeling abnormal [Recovering/Resolving]
  - Nausea [Recovering/Resolving]
  - Abdominal distension [Recovering/Resolving]

NARRATIVE: CASE EVENT DATE: 201901
